FAERS Safety Report 19282092 (Version 1)
Quarter: 2021Q2

REPORT INFORMATION
  Report Type: Spontaneous
  Country: US (occurrence: US)
  Receive Date: 20210521
  Receipt Date: 20210521
  Transmission Date: 20210717
  Serious: No
  Sender: FDA-Public Use
  Company Number: US-GLAXOSMITHKLINE-US2021105218

PATIENT
  Sex: Female

DRUGS (1)
  1. BREO ELLIPTA [Suspect]
     Active Substance: FLUTICASONE FUROATE\VILANTEROL TRIFENATATE
     Indication: PRODUCT USED FOR UNKNOWN INDICATION
     Dosage: 100/25, ONE A DAY
     Route: 055
     Dates: start: 20210429, end: 20210514

REACTIONS (3)
  - Heavy menstrual bleeding [Unknown]
  - Menstruation irregular [Unknown]
  - Menstrual disorder [Unknown]
